FAERS Safety Report 23815946 (Version 1)
Quarter: 2024Q2

REPORT INFORMATION
  Report Type: Spontaneous
  Country: US (occurrence: None)
  Receive Date: 20240502
  Receipt Date: 20240502
  Transmission Date: 20240716
  Serious: Yes (Hospitalization)
  Sender: FDA-Public Use
  Company Number: None

PATIENT
  Age: 24 Year
  Sex: Male
  Weight: 62.8 kg

DRUGS (3)
  1. CAFFEINE\DIETARY SUPPLEMENT [Suspect]
     Active Substance: CAFFEINE\DIETARY SUPPLEMENT
     Indication: Substance abuse
     Route: 048
  2. NIACIN [Suspect]
     Active Substance: NIACIN
  3. OXYMETAZOLINE [Suspect]
     Active Substance: OXYMETAZOLINE

REACTIONS (4)
  - Cardiac arrest [None]
  - Ventricular tachycardia [None]
  - Ventricular fibrillation [None]
  - Hypoxic-ischaemic encephalopathy [None]

NARRATIVE: CASE EVENT DATE: 20240429
